FAERS Safety Report 6064431-9 (Version None)
Quarter: 2009Q1

REPORT INFORMATION
  Report Type: 
  Country: None (occurrence: None)
  Receive Date: 20090203
  Receipt Date: 20090203
  Transmission Date: 20090719
  Serious: Yes (Life-Threatening, Hospitalization)
  Sender: FDA-Public Use
  Company Number: None

PATIENT
  Age: 27 Year
  Sex: Male
  Weight: 76.5 kg

DRUGS (1)
  1. CHANTIX [Suspect]
     Indication: SMOKING CESSATION THERAPY
     Dosage: 3-4 WEEKS PRIOR TO EVENT

REACTIONS (3)
  - CARDIAC ARREST [None]
  - MUSCLE RIGIDITY [None]
  - VENTRICULAR FIBRILLATION [None]
